FAERS Safety Report 4947477-0 (Version None)
Quarter: 2006Q1

REPORT INFORMATION
  Report Type: 
  Country: None (occurrence: None)
  Receive Date: 20060320
  Receipt Date: 20060307
  Transmission Date: 20060701
  Serious: Yes (Other)
  Sender: FDA-Public Use
  Company Number: US-JNJFOC-20060301821

PATIENT
  Age: 62 Year
  Sex: Female
  Weight: 70.31 kg

DRUGS (19)
  1. REMICADE [Suspect]
     Indication: RHEUMATOID ARTHRITIS
     Dosage: 6 INFUSIONS AT 3 MG/KG
     Route: 042
  2. METHOTREXATE [Concomitant]
     Dosage: 2.5 MG THREE TABLETS EACH WEEK
  3. FOLIC ACID [Concomitant]
  4. CALCIUM WITH VITAMIN D [Concomitant]
  5. CALCIUM WITH VITAMIN D [Concomitant]
  6. CALCIUM WITH VITAMIN D [Concomitant]
  7. VITAMIN E [Concomitant]
  8. IRON SUPPLEMENT [Concomitant]
  9. MULTI-VITAMIN [Concomitant]
  10. MULTI-VITAMIN [Concomitant]
  11. MULTI-VITAMIN [Concomitant]
  12. MULTI-VITAMIN [Concomitant]
  13. MULTI-VITAMIN [Concomitant]
  14. MULTI-VITAMIN [Concomitant]
  15. MULTI-VITAMIN [Concomitant]
  16. MULTI-VITAMIN [Concomitant]
  17. ASPIRIN [Concomitant]
  18. HYDROXYCHLOROQUINE SULFATE [Concomitant]
  19. CELEBREX [Concomitant]

REACTIONS (2)
  - B-CELL UNCLASSIFIABLE LYMPHOMA LOW GRADE [None]
  - CHRONIC LYMPHOCYTIC LEUKAEMIA [None]
